FAERS Safety Report 7704833-5 (Version None)
Quarter: 2011Q3

REPORT INFORMATION
  Report Type: 
  Country: None (occurrence: None)
  Receive Date: 20110823
  Receipt Date: 20110810
  Transmission Date: 20111222
  Serious: Yes (Other)
  Sender: FDA-Public Use
  Company Number: PHHY2011US69155

PATIENT
  Sex: Female

DRUGS (2)
  1. GILENYA [Suspect]
     Dosage: 0.5 MG, QOD
     Route: 048
  2. GILENYA [Suspect]
     Indication: MULTIPLE SCLEROSIS
     Dosage: 0.5 MG/DAILY
     Route: 048
     Dates: start: 20110721

REACTIONS (8)
  - FALL [None]
  - HEADACHE [None]
  - CONCUSSION [None]
  - DIARRHOEA [None]
  - VOMITING [None]
  - FEELING ABNORMAL [None]
  - NAUSEA [None]
  - HYPERHIDROSIS [None]
